FAERS Safety Report 4726052-7 (Version None)
Quarter: 2005Q3

REPORT INFORMATION
  Report Type: 
  Country: None (occurrence: None)
  Receive Date: 20050727
  Receipt Date: 20050722
  Transmission Date: 20060218
  Serious: Yes (Death)
  Sender: FDA-Public Use
  Company Number: 2005SE04269

PATIENT
  Age: 1 Hour
  Sex: Female
  Weight: 0.9 kg

DRUGS (1)
  1. BLOPRESS [Suspect]
     Indication: HYPERTENSION
     Route: 064

REACTIONS (4)
  - DEEP VEIN THROMBOSIS [None]
  - DRUG EXPOSURE DURING PREGNANCY [None]
  - OEDEMA PERIPHERAL [None]
  - PULMONARY HYPOPLASIA [None]
